FAERS Safety Report 12658393 (Version 1)
Quarter: 2016Q3

REPORT INFORMATION
  Report Type: Spontaneous
  Country: US (occurrence: None)
  Receive Date: 20160816
  Receipt Date: 20160816
  Transmission Date: 20161109
  Serious: Yes (Death)
  Sender: FDA-Public Use
  Company Number: None

PATIENT
  Age: 90 Year
  Sex: Female

DRUGS (1)
  1. ADCIRCA [Suspect]
     Active Substance: TADALAFIL
     Dosage: 20 MG 2 TABS QD PO
     Route: 048
     Dates: start: 20130307, end: 20160815

REACTIONS (1)
  - Death [None]

NARRATIVE: CASE EVENT DATE: 20160804
